FAERS Safety Report 8221995-4 (Version None)
Quarter: 2012Q1

REPORT INFORMATION
  Report Type: 
  Country: None (occurrence: None)
  Receive Date: 20120320
  Receipt Date: 20120309
  Transmission Date: 20120608
  Serious: Yes (Other)
  Sender: FDA-Public Use
  Company Number: US-US-EMD SERONO, INC.-7118514

PATIENT
  Sex: Female
  Weight: 67 kg

DRUGS (2)
  1. COUMADIN [Concomitant]
     Indication: AORTIC VALVE REPLACEMENT
  2. REBIF [Suspect]
     Indication: MULTIPLE SCLEROSIS
     Route: 058
     Dates: start: 20091007

REACTIONS (1)
  - URINARY INCONTINENCE [None]
